FAERS Safety Report 10163960 (Version 1)
Quarter: 2014Q2

REPORT INFORMATION
  Report Type: Spontaneous
  Country: US (occurrence: US)
  Receive Date: 20140510
  Receipt Date: 20140510
  Transmission Date: 20141212
  Serious: No
  Sender: FDA-Public Use
  Company Number: US-BRISTOL-MYERS SQUIBB COMPANY-19714740

PATIENT
  Age: 71 Year
  Sex: Female
  Weight: 80.27 kg

DRUGS (2)
  1. BYETTA [Suspect]
     Indication: TYPE 2 DIABETES MELLITUS
     Dosage: SHE STARTED OUT ON 5 MCG AND THEN HER PHYSICIAN INCREASED TO 10 MCG
  2. GLUCOPHAGE [Suspect]

REACTIONS (2)
  - Blood glucose increased [Unknown]
  - Nausea [Unknown]
